FAERS Safety Report 22228023 (Version 2)
Quarter: 2023Q2

REPORT INFORMATION
  Report Type: Spontaneous
  Country: US (occurrence: US)
  Receive Date: 20230419
  Receipt Date: 20230525
  Transmission Date: 20230722
  Serious: No
  Sender: FDA-Public Use
  Company Number: US-BAYER-2023A046903

PATIENT
  Age: 58 Year
  Sex: Female

DRUGS (1)
  1. CLIMARA PRO [Suspect]
     Active Substance: ESTRADIOL\LEVONORGESTREL
     Indication: Hot flush
     Dosage: UNK
     Route: 062
     Dates: start: 202303

REACTIONS (1)
  - Intermenstrual bleeding [None]

NARRATIVE: CASE EVENT DATE: 20230405
